FAERS Safety Report 19891657 (Version 1)
Quarter: 2021Q3

REPORT INFORMATION
  Report Type: Spontaneous
  Country: IT (occurrence: IT)
  Receive Date: 20210928
  Receipt Date: 20210928
  Transmission Date: 20211014
  Serious: Yes (Hospitalization)
  Sender: FDA-Public Use
  Company Number: IT-PFIZER INC-202101224723

PATIENT
  Age: 67 Year
  Sex: Female

DRUGS (4)
  1. CARBOPLATIN. [Suspect]
     Active Substance: CARBOPLATIN
     Indication: OVARIAN CANCER STAGE III
     Dosage: UNK, CYCLIC (AUC5, FOR 6 CYCLES)
  2. PACLITAXEL. [Concomitant]
     Active Substance: PACLITAXEL
     Dosage: 175 MG/M2, CYCLIC (Q21 REGIMEN, FOR 6 CYCLES)
     Route: 042
  3. PEGYLATED LIPOSOMAL DOXORUBICIN [Concomitant]
     Active Substance: DOXORUBICIN
     Indication: OVARIAN CANCER STAGE III
     Dosage: UNK
  4. TRABECTEDIN [Concomitant]
     Active Substance: TRABECTEDIN
     Indication: OVARIAN CANCER
     Dosage: UNK

REACTIONS (3)
  - Hyperhidrosis [Unknown]
  - Hypotension [Unknown]
  - Rash [Unknown]
